FAERS Safety Report 26013745 (Version 1)
Quarter: 2025Q4

REPORT INFORMATION
  Report Type: Spontaneous
  Country: IL (occurrence: IL)
  Receive Date: 20251107
  Receipt Date: 20251107
  Transmission Date: 20260117
  Serious: Yes (Life-Threatening)
  Sender: MERCK SHARP & DOHME LLC
  Company Number: IL-009507513-2346887

PATIENT
  Age: 45 Year
  Sex: Male

DRUGS (1)
  1. KEYTRUDA [Suspect]
     Active Substance: PEMBROLIZUMAB
     Indication: Head and neck cancer
     Dosage: THIRD LINE THERAPY + CHEMOTHERAPY

REACTIONS (3)
  - Fistula [Unknown]
  - Arterial haemorrhage [Unknown]
  - Product use in unapproved indication [Unknown]
